FAERS Safety Report 21416634 (Version 1)
Quarter: 2022Q4

REPORT INFORMATION
  Report Type: Spontaneous
  Country: US (occurrence: US)
  Receive Date: 20221006
  Receipt Date: 20221006
  Transmission Date: 20230113
  Serious: Yes (Hospitalization)
  Sender: FDA-Public Use
  Company Number: US-ALLERGAN-2221951US

PATIENT
  Sex: Female

DRUGS (2)
  1. VRAYLAR [Suspect]
     Active Substance: CARIPRAZINE
     Indication: Product used for unknown indication
     Dosage: 3 MG, UNKNOWN
     Route: 048
  2. VRAYLAR [Suspect]
     Active Substance: CARIPRAZINE
     Dosage: 1.5 MG, UNKNOWN
     Route: 048

REACTIONS (1)
  - Parkinsonism [Recovered/Resolved]
